FAERS Safety Report 17754499 (Version 1)
Quarter: 2020Q2

REPORT INFORMATION
  Report Type: Spontaneous
  Country: US (occurrence: US)
  Receive Date: 20200506
  Receipt Date: 20200506
  Transmission Date: 20200714
  Serious: No
  Sender: FDA-Public Use
  Company Number: US-ELI_LILLY_AND_COMPANY-US202004012341

PATIENT
  Age: 23 Year
  Sex: Female

DRUGS (3)
  1. GALCANEZUMAB 120MG [Suspect]
     Active Substance: GALCANEZUMAB
     Indication: MIGRAINE
     Dosage: 120 MG, UNKNOWN
     Route: 065
  2. IMMUNOGLOBULIN I.V [Concomitant]
     Active Substance: HUMAN IMMUNOGLOBULIN G
     Indication: IMMUNOGLOBULINS DECREASED
  3. IMMUNOGLOBULIN I.V [Concomitant]
     Active Substance: HUMAN IMMUNOGLOBULIN G
     Indication: IMMUNE SYSTEM DISORDER
     Dosage: UNK, OTHER
     Route: 065

REACTIONS (4)
  - Malaise [Unknown]
  - Headache [Unknown]
  - Injection site injury [Unknown]
  - Stress [Unknown]

NARRATIVE: CASE EVENT DATE: 20200422
